FAERS Safety Report 9028930 (Version 1)
Quarter: 2013Q1

REPORT INFORMATION
  Report Type: Spontaneous
  Country: IT (occurrence: IT)
  Receive Date: 20130124
  Receipt Date: 20130124
  Transmission Date: 20140127
  Serious: Yes (Other)
  Sender: FDA-Public Use
  Company Number: IT-SANOFI-AVENTIS-2013SA004221

PATIENT
  Age: 90 Year
  Sex: Female

DRUGS (4)
  1. FUROSEMIDE [Suspect]
     Indication: RENAL FAILURE CHRONIC
     Route: 048
     Dates: start: 20111124, end: 20121123
  2. COUMADIN [Concomitant]
     Dosage: STRENGTH: 5 MG
  3. AMIODARONE HYDROCHLORIDE [Concomitant]
  4. ALLOPURINOL [Concomitant]

REACTIONS (3)
  - Syncope [Recovering/Resolving]
  - Dehydration [Recovering/Resolving]
  - Hypokalaemia [Recovering/Resolving]
